FAERS Safety Report 25152242 (Version 1)
Quarter: 2025Q2

REPORT INFORMATION
  Report Type: Spontaneous
  Country: GB (occurrence: GB)
  Receive Date: 20250402
  Receipt Date: 20250402
  Transmission Date: 20250716
  Serious: Yes (Disabling)
  Sender: ELI LILLY AND CO
  Company Number: GB-MHRA-TPP25050971C10718429YC1742391729594

PATIENT
  Age: 43 Year
  Sex: Female
  Weight: 98 kg

DRUGS (3)
  1. MOUNJARO [Suspect]
     Active Substance: TIRZEPATIDE
     Indication: Product used for unknown indication
     Dosage: 2.5 MG, WEEKLY (1/W)
     Route: 065
     Dates: start: 20250314
  2. DOXYCYCLINE [Concomitant]
     Active Substance: DOXYCYCLINE
     Indication: Product used for unknown indication
     Dosage: 1 DOSAGE FORM, BID
     Dates: start: 20250213, end: 20250218
  3. NAPROXEN [Concomitant]
     Active Substance: NAPROXEN
     Indication: Product used for unknown indication
     Dosage: 1 DOSAGE FORM, BID
     Dates: start: 20211220

REACTIONS (5)
  - Feeling of body temperature change [Unknown]
  - Pain in jaw [Recovering/Resolving]
  - Eye pain [Not Recovered/Not Resolved]
  - Tremor [Recovered/Resolved]
  - Neck pain [Recovering/Resolving]
